FAERS Safety Report 9474242 (Version 1)
Quarter: 2013Q3

REPORT INFORMATION
  Report Type: Spontaneous
  Country: CH (occurrence: None)
  Receive Date: 20130820
  Receipt Date: 20130820
  Transmission Date: 20140515
  Serious: Yes (Other)
  Sender: FDA-Public Use
  Company Number: CH-DEXPHARM-20130499

PATIENT
  Age: 49 Year
  Sex: Male

DRUGS (2)
  1. OMEPRAZOLE [Suspect]
  2. IBUPROFEN [Concomitant]

REACTIONS (4)
  - Anaphylactic reaction [None]
  - Angioedema [None]
  - Dyspnoea [None]
  - Urticaria [None]
